FAERS Safety Report 15395596 (Version 2)
Quarter: 2018Q4

REPORT INFORMATION
  Report Type: Spontaneous
  Country: DE (occurrence: DE)
  Receive Date: 20180918
  Receipt Date: 20181120
  Transmission Date: 20190204
  Serious: No
  Sender: FDA-Public Use
  Company Number: DE-JNJFOC-20180907493

PATIENT
  Age: 83 Year
  Sex: Male

DRUGS (2)
  1. XARELTO [Suspect]
     Active Substance: RIVAROXABAN
     Indication: VENOUS THROMBOSIS LIMB
     Route: 048
     Dates: start: 20180509, end: 20180826
  2. TILIDIN [Concomitant]
     Active Substance: NALOXONE HYDROCHLORIDE\TILIDINE HYDROCHLORIDE
     Route: 065
     Dates: start: 20180607

REACTIONS (1)
  - Mood swings [Recovered/Resolved]

NARRATIVE: CASE EVENT DATE: 20180601
